FAERS Safety Report 23788516 (Version 1)
Quarter: 2024Q2

REPORT INFORMATION
  Report Type: Spontaneous
  Country: US (occurrence: US)
  Receive Date: 20240426
  Receipt Date: 20240426
  Transmission Date: 20240715
  Serious: No
  Sender: FDA-Public Use
  Company Number: US-PTx-2023000049

PATIENT
  Age: 41 Year
  Sex: Male

DRUGS (3)
  1. LEUKINE [Suspect]
     Active Substance: SARGRAMOSTIM
     Indication: Alveolar proteinosis
     Dosage: DOSE REDUCED TO 250 MCG ONCE A DAY
     Route: 058
  2. LEUKINE [Suspect]
     Active Substance: SARGRAMOSTIM
     Indication: Alveolar proteinosis
     Dosage: DOSAGE WAS INCREASED INCREMENTALLY TO 750 MCG TWICE A DAY AND THEN REDUCED TO ONCE A DAY DAILY
     Route: 058
  3. LEUKINE [Suspect]
     Active Substance: SARGRAMOSTIM
     Indication: Alveolar proteinosis
     Dosage: INITIALLY TREATED WITH SUBCUTEANEOUS GM-CSF AT 250 MCG A DAY.

REACTIONS (5)
  - Eosinophilia [Recovered/Resolved]
  - Leukocytosis [Unknown]
  - Dyspnoea [Unknown]
  - Cough [Unknown]
  - Drug ineffective [Unknown]
